FAERS Safety Report 24223881 (Version 1)
Quarter: 2024Q3

REPORT INFORMATION
  Report Type: Report from Study
  Country: US (occurrence: US)
  Receive Date: 20240819
  Receipt Date: 20240819
  Transmission Date: 20241016
  Serious: No
  Sender: DR REDDYS
  Company Number: US-E2BLSMVVAL-CLI/USA/24/0011704

PATIENT
  Age: 25 Year
  Sex: Female
  Weight: 56 kg

DRUGS (5)
  1. JAVYGTOR [Suspect]
     Active Substance: SAPROPTERIN DIHYDROCHLORIDE
     Indication: Phenylketonuria
     Dosage: TWO 100MG TABLETS WITH TWO 500MG POWDER BY MOUTH
     Route: 048
  2. JAVYGTOR [Suspect]
     Active Substance: SAPROPTERIN DIHYDROCHLORIDE
     Indication: Phenylketonuria
     Dosage: TWO 100MG TABLETS WITH TWO 500MG POWDER BY MOUTH
     Route: 048
  3. SAPROPTERIN DIHYDROCHLORIDE [Concomitant]
     Active Substance: SAPROPTERIN DIHYDROCHLORIDE
     Indication: Product used for unknown indication
     Route: 065
  4. Epipen 0.3mg/0.3 Auto Injct [Concomitant]
     Indication: Product used for unknown indication
     Dosage: 0.3MG/0.3 AUTO INJCT
     Route: 065
  5. Ibuprofen 100 mg tab chew [Concomitant]
     Indication: Product used for unknown indication
     Route: 065

REACTIONS (1)
  - Product use issue [Unknown]
